FAERS Safety Report 7722759-8 (Version None)
Quarter: 2011Q3

REPORT INFORMATION
  Report Type: 
  Country: None (occurrence: None)
  Receive Date: 20110831
  Receipt Date: 20110819
  Transmission Date: 20111222
  Serious: No
  Sender: FDA-Public Use
  Company Number: US-B.I. PHARMACEUTICALS,INC./RIDGEFIELD-2011-BP-20423BP

PATIENT
  Sex: Female

DRUGS (13)
  1. CLONOPIN [Concomitant]
     Indication: INSOMNIA
     Dosage: 0.5 MG
     Route: 048
     Dates: start: 20090101
  2. LYRICA [Concomitant]
     Indication: MIGRAINE
     Dosage: 50 MG
     Route: 048
     Dates: start: 20090101
  3. BACLOFEN [Concomitant]
     Indication: MIGRAINE
     Dosage: 10 MG
     Route: 048
     Dates: start: 20090101
  4. KEPRA [Concomitant]
     Indication: MIGRAINE
     Dosage: 500 MG
     Route: 048
     Dates: start: 20090101
  5. VYTORIN [Concomitant]
     Indication: BLOOD CHOLESTEROL INCREASED
     Route: 048
     Dates: start: 20090101
  6. MULTI-VITAMIN [Concomitant]
     Indication: SUPPLEMENTATION THERAPY
     Route: 048
     Dates: start: 20010101
  7. CALCIUM CARBONATE [Concomitant]
     Indication: SUPPLEMENTATION THERAPY
     Route: 048
     Dates: start: 20010101
  8. PRADAXA [Suspect]
     Indication: ATRIAL FIBRILLATION
     Dosage: 300 MG
     Route: 048
     Dates: start: 20110301
  9. TRIMETHAZINE [Concomitant]
     Indication: HYPERTENSION
     Dosage: 37.5 MG
     Route: 048
     Dates: start: 20060101
  10. POTASSIUM [Concomitant]
     Indication: HYPERTENSION
     Dosage: 10 MG
     Route: 048
     Dates: start: 20060101
  11. AMLODIPINE [Concomitant]
     Indication: HYPERTENSION
     Dosage: 5 MG
     Route: 048
     Dates: start: 20060101
  12. TOPAMAX [Concomitant]
     Indication: MIGRAINE
     Dosage: 250 MG
     Route: 048
     Dates: start: 20090101
  13. RYTHMOL [Concomitant]
     Indication: ATRIAL FIBRILLATION
     Dosage: 650 MG
     Route: 048
     Dates: start: 20010101

REACTIONS (1)
  - VISUAL IMPAIRMENT [None]
